FAERS Safety Report 8918893 (Version 1)
Quarter: 2012Q4

REPORT INFORMATION
  Report Type: Report from Study
  Country: JP (occurrence: JP)
  Receive Date: 20121121
  Receipt Date: 20121121
  Transmission Date: 20130627
  Serious: Yes (Hospitalization)
  Sender: FDA-Public Use
  Company Number: JP-VERTEX PHARMACEUTICAL INC.-AE-2012-008103

PATIENT
  Age: 79 Year
  Sex: Male

DRUGS (6)
  1. VX-950 (TELAPREVIR) [Suspect]
     Indication: HEPATITIS C
     Dosage: 1500 mg, qd
     Dates: start: 20120222, end: 20120504
  2. RIBAVIRIN [Concomitant]
     Indication: CHRONIC HEPATITIS C
     Dosage: 400 mg, qd
     Route: 048
     Dates: start: 20120222, end: 20120504
  3. RIBAVIRIN [Concomitant]
     Dosage: 200 mg, qd
     Route: 048
     Dates: start: 20120516
  4. PEGINTERFERON ALFA-2B [Concomitant]
     Indication: CHRONIC HEPATITIS C
     Dosage: 60 ?g, qw
     Route: 051
     Dates: start: 20120222, end: 20120504
  5. PEGINTERFERON ALFA-2B [Concomitant]
     Dosage: 50 ?g, qw
     Route: 051
     Dates: start: 20120516
  6. ZYLORIC [Concomitant]
     Dosage: 200 mg, qd
     Route: 048
     Dates: end: 20120504

REACTIONS (1)
  - Pneumonia [Recovered/Resolved]
